FAERS Safety Report 8558605-2 (Version None)
Quarter: 2012Q3

REPORT INFORMATION
  Report Type: 
  Country: None (occurrence: None)
  Receive Date: 20120801
  Receipt Date: 20120726
  Transmission Date: 20120928
  Serious: Yes (Hospitalization, Other)
  Sender: FDA-Public Use
  Company Number: US-BIOMARINP-002755

PATIENT
  Sex: Male
  Weight: 103.7 kg

DRUGS (1)
  1. KUVAN [Suspect]
     Indication: PHENYLKETONURIA
     Route: 048
     Dates: start: 20120625, end: 20120716

REACTIONS (4)
  - PNEUMONIA [None]
  - PYREXIA [None]
  - WHEEZING [None]
  - FLANK PAIN [None]
